FAERS Safety Report 17859096 (Version 2)
Quarter: 2020Q2

REPORT INFORMATION
  Report Type: Spontaneous
  Country: SE (occurrence: SE)
  Receive Date: 20200604
  Receipt Date: 20200619
  Transmission Date: 20200714
  Serious: Yes (Other)
  Sender: FDA-Public Use
  Company Number: SE-ROCHE-2611918

PATIENT
  Age: 24 Year
  Sex: Female

DRUGS (6)
  1. MABTHERA [Suspect]
     Active Substance: RITUXIMAB
     Indication: MULTIPLE SCLEROSIS
     Dosage: 1MG/ML
     Route: 041
     Dates: start: 20190114
  2. ALVEDON [Concomitant]
     Active Substance: ACETAMINOPHEN
     Dosage: 2 TABLETS 3-4 TIMES DAILY
     Route: 065
     Dates: start: 20180824
  3. MOVICOL [Concomitant]
     Active Substance: POLYETHYLENE GLYCOL 3350\POTASSIUM CHLORIDE\SODIUM BICARBONATE\SODIUM CHLORIDE
     Dosage: 1 SACHET IF NECESSARY, MAXIMUM 3 SACHETS PER DAY ORALLY
     Route: 048
     Dates: start: 20180825
  4. ZOLPIDEM [Concomitant]
     Active Substance: ZOLPIDEM TARTRATE
     Route: 048
     Dates: start: 20190517
  5. DESOGESTREL [Concomitant]
     Active Substance: DESOGESTREL
     Route: 065
     Dates: start: 20190411
  6. TREO [Concomitant]
     Active Substance: ASPIRIN\CAFFEINE
     Dosage: 1-2 EFFERVESCENT TABLETS IF NECESSARY, MAXIMUM 6 EFFERVESCENT TABLETS PER DAY?FORM STRENGTH: 500 MG/
     Route: 048
     Dates: start: 20180926

REACTIONS (1)
  - Syncope [Recovered/Resolved]

NARRATIVE: CASE EVENT DATE: 20200201
